FAERS Safety Report 24853129 (Version 1)
Quarter: 2025Q1

REPORT INFORMATION
  Report Type: Spontaneous
  Country: US (occurrence: US)
  Receive Date: 20250117
  Receipt Date: 20250117
  Transmission Date: 20250409
  Serious: No
  Sender: SANOFI AVENTIS
  Company Number: US-SANOFI-02371110

PATIENT
  Sex: Male

DRUGS (2)
  1. DUPIXENT [Suspect]
     Active Substance: DUPILUMAB
     Dosage: QOW
  2. DUPIXENT [Suspect]
     Active Substance: DUPILUMAB
     Dosage: QW

REACTIONS (2)
  - Off label use [Unknown]
  - Product storage error [Unknown]
